FAERS Safety Report 5117975-8 (Version None)
Quarter: 2006Q3

REPORT INFORMATION
  Report Type: 
  Country: None (occurrence: None)
  Receive Date: 20060929
  Receipt Date: 20060628
  Transmission Date: 20061208
  Serious: Yes (Disabling, Other)
  Sender: FDA-Public Use
  Company Number: HK-GILEAD-2006-0009805

PATIENT
  Age: 21 Year
  Sex: Male

DRUGS (1)
  1. HEPSERA [Suspect]
     Indication: HEPATITIS B
     Route: 048
     Dates: start: 20060301

REACTIONS (4)
  - ALANINE AMINOTRANSFERASE INCREASED [None]
  - DRUG INEFFECTIVE [None]
  - HEPATITIS B [None]
  - PHARMACEUTICAL PRODUCT COUNTERFEIT [None]
